FAERS Safety Report 7055865-4 (Version None)
Quarter: 2010Q4

REPORT INFORMATION
  Report Type: 
  Country: None (occurrence: None)
  Receive Date: 20101021
  Receipt Date: 20101018
  Transmission Date: 20110411
  Serious: Yes (Other)
  Sender: FDA-Public Use
  Company Number: US-MERCK-1010USA00125

PATIENT
  Age: 35 Year
  Sex: Male
  Weight: 84 kg

DRUGS (5)
  1. JANUMET [Suspect]
     Indication: DIABETES MELLITUS
     Route: 048
     Dates: start: 20100914, end: 20100928
  2. GLIMEPIRIDE [Concomitant]
     Indication: DIABETES MELLITUS
     Route: 048
     Dates: start: 20100914, end: 20100917
  3. GLIMEPIRIDE [Concomitant]
     Route: 048
     Dates: start: 20100901
  4. METFORMIN [Concomitant]
     Indication: DIABETES MELLITUS
     Route: 048
     Dates: start: 20100901, end: 20100914
  5. METFORMIN [Concomitant]
     Route: 048
     Dates: start: 20100901

REACTIONS (2)
  - RASH VESICULAR [None]
  - URTICARIA [None]
